FAERS Safety Report 9133747 (Version 1)
Quarter: 2013Q1

REPORT INFORMATION
  Report Type: Spontaneous
  Country: US (occurrence: US)
  Receive Date: 20130302
  Receipt Date: 20130302
  Transmission Date: 20140127
  Serious: No
  Sender: FDA-Public Use
  Company Number: US-ENDO PHARMACEUTICALS INC.-DELA20110001

PATIENT
  Sex: Male

DRUGS (2)
  1. DELATESTRYL [Suspect]
     Indication: BLOOD TESTOSTERONE DECREASED
     Dosage: UNKNOWN
     Route: 030
     Dates: start: 2010, end: 2010
  2. XANAX [Concomitant]
     Indication: PANIC ATTACK
     Dosage: UNKNOWN
     Route: 065

REACTIONS (1)
  - Agitation [Not Recovered/Not Resolved]
